FAERS Safety Report 25995074 (Version 1)
Quarter: 2025Q4

REPORT INFORMATION
  Report Type: Spontaneous
  Country: US (occurrence: US)
  Receive Date: 20251104
  Receipt Date: 20251104
  Transmission Date: 20260118
  Serious: No
  Sender: STRIDES
  Company Number: US-STRIDES ARCOLAB LIMITED-2025SP008297

PATIENT
  Sex: Female
  Weight: 45.351 kg

DRUGS (4)
  1. ACCOLATE [Suspect]
     Active Substance: ZAFIRLUKAST
     Indication: Cough variant asthma
     Dosage: 20 MILLIGRAM, BID, TABLET,TAKEN ON AN EMPTY STOMACH
     Route: 048
  2. XARELTO [Concomitant]
     Active Substance: RIVAROXABAN
     Indication: Product used for unknown indication
     Dosage: UNK
     Route: 065
  3. PREMPRO [Concomitant]
     Active Substance: ESTROGENS, CONJUGATED\MEDROXYPROGESTERONE ACETATE
     Indication: Product used for unknown indication
     Dosage: UNK
     Route: 065
  4. VITAMINS [Concomitant]
     Active Substance: VITAMINS
     Indication: Product used for unknown indication
     Dosage: UNK
     Route: 065

REACTIONS (3)
  - Therapeutic product effect decreased [Unknown]
  - Drug intolerance [Unknown]
  - Product substitution issue [Unknown]
